FAERS Safety Report 11777087 (Version 2)
Quarter: 2016Q4

REPORT INFORMATION
  Report Type: Spontaneous
  Country: US (occurrence: US)
  Receive Date: 20151125
  Receipt Date: 20161208
  Transmission Date: 20170206
  Serious: Yes (Death, Hospitalization, Other)
  Sender: FDA-Public Use
  Company Number: US-TEVA-557662USA

PATIENT
  Sex: Female

DRUGS (1)
  1. AMIODARONE [Suspect]
     Active Substance: AMIODARONE
     Indication: CARDIAC DISORDER
     Route: 065
     Dates: start: 200604, end: 201312

REACTIONS (17)
  - Pulmonary toxicity [Fatal]
  - Cough [Unknown]
  - Lung disorder [Unknown]
  - Fatigue [Unknown]
  - Product use issue [Unknown]
  - Depression [Unknown]
  - Nervousness [Unknown]
  - Activities of daily living impaired [Unknown]
  - Restlessness [Unknown]
  - Disturbance in attention [Unknown]
  - Acute respiratory distress syndrome [Fatal]
  - Asphyxia [Fatal]
  - Wheezing [Unknown]
  - Asthenia [Unknown]
  - Pulmonary congestion [Unknown]
  - Dyspnoea [Unknown]
  - Irritability [Unknown]
